FAERS Safety Report 5994607-8 (Version None)
Quarter: 2008Q4

REPORT INFORMATION
  Report Type: 
  Country: None (occurrence: None)
  Receive Date: 20081212
  Receipt Date: 20080911
  Transmission Date: 20090506
  Serious: No
  Sender: FDA-Public Use
  Company Number: US-ABBOTT-08P-163-0475597-00

PATIENT
  Sex: Female

DRUGS (5)
  1. HUMIRA [Suspect]
     Indication: RHEUMATOID ARTHRITIS
     Dates: start: 20080523
  2. AMITRIPTYLINE HCL [Concomitant]
     Indication: MIGRAINE
     Dosage: ONE DAILY AT NIGHT
     Route: 048
     Dates: start: 20080401
  3. PROPRANOLOL [Concomitant]
     Indication: MIGRAINE
     Route: 048
     Dates: start: 20080401
  4. NAPROXEN SODIUM [Concomitant]
     Indication: PAIN
     Route: 048
  5. METHOTREXATE [Concomitant]
     Indication: RHEUMATOID ARTHRITIS
     Route: 048
     Dates: start: 20080701

REACTIONS (1)
  - HALLUCINATION [None]
